FAERS Safety Report 5656068-8 (Version None)
Quarter: 2008Q1

REPORT INFORMATION
  Report Type: 
  Country: None (occurrence: None)
  Receive Date: 20080307
  Receipt Date: 20080226
  Transmission Date: 20080703
  Serious: Yes (Death)
  Sender: FDA-Public Use
  Company Number: US-PFIZER INC-2008019878

PATIENT
  Sex: Male
  Weight: 63.5 kg

DRUGS (2)
  1. MINIPRESS [Suspect]
  2. ANALGESICS [Concomitant]
     Indication: PAIN

REACTIONS (1)
  - DEATH [None]
